FAERS Safety Report 7369594-0 (Version None)
Quarter: 2011Q1

REPORT INFORMATION
  Report Type: 
  Country: None (occurrence: None)
  Receive Date: 20110314
  Receipt Date: 20110302
  Transmission Date: 20110831
  Serious: Yes (Other)
  Sender: FDA-Public Use
  Company Number: UTC-005495

PATIENT
  Age: 52 Year
  Sex: Male

DRUGS (1)
  1. REMODULIN [Suspect]
     Indication: PULMONARY ARTERIAL HYPERTENSION
     Dosage: 120.9611UG/KG (0.084 UG/KG, 1 IN 1 MIN),INTRAVENOUS
     Route: 042

REACTIONS (1)
  - RIGHT VENTRICULAR FAILURE [None]
